FAERS Safety Report 5548668-0 (Version None)
Quarter: 2007Q4

REPORT INFORMATION
  Report Type: 
  Country: None (occurrence: None)
  Receive Date: 20071211
  Receipt Date: 20070406
  Transmission Date: 20080405
  Serious: No
  Sender: FDA-Public Use
  Company Number: US-AMGEN-KDL218458

PATIENT
  Sex: Female

DRUGS (3)
  1. ENBREL [Suspect]
     Indication: RHEUMATOID ARTHRITIS
     Route: 058
     Dates: start: 20060201
  2. METHOTREXATE [Concomitant]
     Route: 048
     Dates: start: 19850101
  3. PLAQUENIL [Concomitant]
     Route: 048
     Dates: start: 19850101

REACTIONS (4)
  - COUGH [None]
  - EYE PRURITUS [None]
  - HYPERSENSITIVITY [None]
  - SNEEZING [None]
